FAERS Safety Report 6458567-8 (Version None)
Quarter: 2009Q4

REPORT INFORMATION
  Report Type: 
  Country: None (occurrence: None)
  Receive Date: 20091126
  Receipt Date: 20091015
  Transmission Date: 20100525
  Serious: Yes (Life-Threatening, Other)
  Sender: FDA-Public Use
  Company Number: JP-JNJFOC-20091104693

PATIENT
  Sex: Male

DRUGS (18)
  1. RISPERDAL [Suspect]
     Indication: SCHIZOPHRENIA
     Route: 048
  2. ABILIFY [Suspect]
     Route: 048
  3. ABILIFY [Suspect]
     Route: 048
  4. ABILIFY [Suspect]
     Route: 048
  5. ABILIFY [Suspect]
     Route: 048
  6. ABILIFY [Suspect]
     Indication: SCHIZOPHRENIA
     Route: 048
  7. LONASEN [Suspect]
     Route: 048
  8. LONASEN [Suspect]
     Indication: DRUG USE FOR UNKNOWN INDICATION
     Route: 048
  9. CHLORPROMAZINE [Suspect]
     Route: 048
  10. CHLORPROMAZINE [Suspect]
     Route: 048
  11. CHLORPROMAZINE [Suspect]
     Route: 048
  12. CHLORPROMAZINE [Suspect]
     Indication: DRUG USE FOR UNKNOWN INDICATION
     Route: 048
  13. TASMOLIN [Suspect]
     Indication: DRUG USE FOR UNKNOWN INDICATION
     Route: 048
  14. MAGNESIUM OXIDE [Suspect]
     Indication: DRUG USE FOR UNKNOWN INDICATION
     Route: 048
  15. GLUCOBAY [Suspect]
     Route: 048
  16. GLUCOBAY [Suspect]
     Indication: DRUG USE FOR UNKNOWN INDICATION
     Route: 048
  17. SODIUM PICOSULFATE [Suspect]
     Indication: DRUG USE FOR UNKNOWN INDICATION
     Route: 048
  18. VERAPAMIL HCL [Suspect]
     Indication: DRUG USE FOR UNKNOWN INDICATION
     Route: 048

REACTIONS (2)
  - INTESTINAL OBSTRUCTION [None]
  - URINARY RETENTION [None]
